FAERS Safety Report 23201364 (Version 1)
Quarter: 2023Q4

REPORT INFORMATION
  Report Type: Report from Study
  Country: US (occurrence: US)
  Receive Date: 20231118
  Receipt Date: 20231118
  Transmission Date: 20240110
  Serious: Yes (Hospitalization, Other)
  Sender: FDA-Public Use
  Company Number: US-ABBVIE-5499691

PATIENT
  Sex: Female

DRUGS (1)
  1. CREON [Suspect]
     Active Substance: PANCRELIPASE AMYLASE\PANCRELIPASE LIPASE\PANCRELIPASE PROTEASE
     Indication: Product used for unknown indication
     Dosage: CREON DR, 12000 UNITES CAPSULE TAKE TWO BY MOUTH WITH MEAL AND ONE WITH SNACKS.
     Route: 048

REACTIONS (2)
  - Living in residential institution [Unknown]
  - Hospitalisation [Unknown]
